FAERS Safety Report 9158138 (Version 1)
Quarter: 2013Q1

REPORT INFORMATION
  Report Type: Spontaneous
  Country: FR (occurrence: None)
  Receive Date: 20130212
  Receipt Date: 20130212
  Transmission Date: 20140127
  Serious: Yes (Other)
  Sender: FDA-Public Use
  Company Number: 2013P1002257

PATIENT
  Age: 8 Month
  Sex: 0

DRUGS (1)
  1. FENTANYL [Suspect]

REACTIONS (2)
  - Accidental exposure to product by child [None]
  - Accidental poisoning [None]
